FAERS Safety Report 17048366 (Version 4)
Quarter: 2019Q4

REPORT INFORMATION
  Report Type: Spontaneous
  Country: US (occurrence: US)
  Receive Date: 20191119
  Receipt Date: 20191217
  Transmission Date: 20200122
  Serious: No
  Sender: FDA-Public Use
  Company Number: US-PFIZER INC-2019496739

PATIENT
  Age: 66 Year
  Sex: Male
  Weight: 120 kg

DRUGS (2)
  1. SILDENAFIL CITRATE. [Suspect]
     Active Substance: SILDENAFIL CITRATE
     Dosage: 200 MG, UNK (TOOK 2 TABLETS OF 200MG)
  2. SILDENAFIL CITRATE. [Suspect]
     Active Substance: SILDENAFIL CITRATE
     Indication: SEXUAL DYSFUNCTION
     Dosage: 100 MG, UNK (1 TABLET AND THEN TOOK 2 TABLETS)
     Dates: start: 2016

REACTIONS (2)
  - Overdose [Unknown]
  - Drug ineffective [Unknown]
